FAERS Safety Report 25615870 (Version 3)
Quarter: 2025Q4

REPORT INFORMATION
  Report Type: Spontaneous
  Country: US (occurrence: US)
  Receive Date: 20250729
  Receipt Date: 20251027
  Transmission Date: 20260118
  Serious: No
  Sender: LUPIN
  Company Number: US-LUPIN PHARMACEUTICALS INC.-2025-06711

PATIENT
  Age: 49 Year

DRUGS (2)
  1. TOLVAPTAN [Suspect]
     Active Substance: TOLVAPTAN
     Indication: Product used for unknown indication
     Dosage: 45 MILLIGRAM, QD
  2. TOLVAPTAN [Suspect]
     Active Substance: TOLVAPTAN
     Indication: Product used for unknown indication
     Dosage: 15 MILLIGRAM, QD

REACTIONS (3)
  - Fatigue [Unknown]
  - Feeling abnormal [Unknown]
  - Product substitution issue [Unknown]
